FAERS Safety Report 4621095-6 (Version None)
Quarter: 2005Q1

REPORT INFORMATION
  Report Type: 
  Country: None (occurrence: None)
  Receive Date: 20050325
  Receipt Date: 20050317
  Transmission Date: 20050727
  Serious: Yes (Hospitalization)
  Sender: FDA-Public Use
  Company Number: 2005046080

PATIENT
  Age: 11 Year
  Sex: Male

DRUGS (5)
  1. ZITHROMAX [Suspect]
     Indication: NASOPHARYNGITIS
     Dosage: 1 D, ORAL
     Route: 048
     Dates: start: 20050316, end: 20050316
  2. CELESTAMINE (BETAMETHASONE, CHLORPHENAMINE MALEATE) [Suspect]
     Indication: ILL-DEFINED DISORDER
     Dosage: 1 D, ORAL
     Route: 048
     Dates: start: 20050201
  3. ALL OTHER THERAPEUTIC PRODUCTS (ALL OTHER THERAPEUTIC PRODUCTS) [Suspect]
     Indication: NASOPHARYNGITIS
     Dosage: 1 D, ORAL
     Route: 048
     Dates: start: 20050316, end: 72000316
  4. LACTOBACILLUS ACIDOPHILUS (LACTOBACILLUS ACIDOPHILIUS) [Concomitant]
  5. ACETAMINOPHEN [Concomitant]

REACTIONS (4)
  - CONVULSION [None]
  - DELIRIUM [None]
  - DYSKINESIA [None]
  - FEELING DRUNK [None]
